FAERS Safety Report 10050413 (Version 7)
Quarter: 2015Q2

REPORT INFORMATION
  Report Type: Spontaneous
  Country: US (occurrence: US)
  Receive Date: 20140401
  Receipt Date: 20150413
  Transmission Date: 20150821
  Serious: Yes (Hospitalization, Disabling)
  Sender: FDA-Public Use
  Company Number: US-009507513-1403USA012650

PATIENT
  Sex: Male
  Weight: 78.46 kg

DRUGS (4)
  1. FINASTERIDE. [Suspect]
     Active Substance: FINASTERIDE
     Indication: ALOPECIA
     Dosage: 1/4 5 MG TABLET, QD
     Route: 048
     Dates: start: 20101210
  2. PROPECIA [Suspect]
     Active Substance: FINASTERIDE
     Indication: ALOPECIA
     Dosage: 1 MG, UNK
     Route: 048
     Dates: start: 199809, end: 199912
  3. PROPECIA [Suspect]
     Active Substance: FINASTERIDE
     Dosage: 1 MG, UNK
     Route: 048
     Dates: start: 201002, end: 2011
  4. PROPECIA [Suspect]
     Active Substance: FINASTERIDE
     Dosage: 1 MG, UNK
     Route: 048
     Dates: start: 20110330, end: 20110423

REACTIONS (40)
  - Amnesia [Not Recovered/Not Resolved]
  - Asthenia [Unknown]
  - Gynaecomastia [Not Recovered/Not Resolved]
  - Loss of libido [Not Recovered/Not Resolved]
  - Seborrhoeic dermatitis [Unknown]
  - Testicular failure [Unknown]
  - Arthropathy [Unknown]
  - Fatigue [Not Recovered/Not Resolved]
  - Penile size reduced [Not Recovered/Not Resolved]
  - Androgen deficiency [Unknown]
  - Wrong technique in drug usage process [Unknown]
  - Feeling abnormal [Not Recovered/Not Resolved]
  - Dysuria [Unknown]
  - Erectile dysfunction [Not Recovered/Not Resolved]
  - Drug ineffective [Unknown]
  - Prostatic pain [Not Recovered/Not Resolved]
  - Prostate infection [Not Recovered/Not Resolved]
  - Urethritis [Unknown]
  - Adrenogenital syndrome [Unknown]
  - Cerumen impaction [Unknown]
  - Depression [Not Recovered/Not Resolved]
  - Inflammation [Unknown]
  - Headache [Unknown]
  - Road traffic accident [Unknown]
  - Drug intolerance [Unknown]
  - Rash [Unknown]
  - Asthma [Unknown]
  - Musculoskeletal pain [Unknown]
  - Off label use [Unknown]
  - Speech disorder [Not Recovered/Not Resolved]
  - Anxiety [Not Recovered/Not Resolved]
  - Rotator cuff syndrome [Unknown]
  - Sexual dysfunction [Not Recovered/Not Resolved]
  - Prostatitis [Not Recovered/Not Resolved]
  - Essential hypertension [Unknown]
  - Painful ejaculation [Unknown]
  - Insomnia [Unknown]
  - Arthralgia [Unknown]
  - Type V hyperlipidaemia [Unknown]
  - Intervertebral disc displacement [Unknown]

NARRATIVE: CASE EVENT DATE: 199811
